FAERS Safety Report 9041491 (Version 3)
Quarter: 2013Q1

REPORT INFORMATION
  Report Type: Spontaneous
  Country: US (occurrence: US)
  Receive Date: 20130129
  Receipt Date: 20130227
  Transmission Date: 20140127
  Serious: Yes (Death)
  Sender: FDA-Public Use
  Company Number: US-GENZYME-CAMP-1002692

PATIENT
  Sex: Male
  Weight: 107 kg

DRUGS (1)
  1. CAMPATH [Suspect]
     Indication: LYMPHOMA
     Dosage: 30 MG, 3X/W
     Route: 065
     Dates: start: 20121121

REACTIONS (2)
  - Splenic infarction [Fatal]
  - Hypotension [Fatal]
